FAERS Safety Report 23924117 (Version 3)
Quarter: 2024Q2

REPORT INFORMATION
  Report Type: Spontaneous
  Country: US (occurrence: US)
  Receive Date: 20240531
  Receipt Date: 20240619
  Transmission Date: 20240716
  Serious: Yes (Hospitalization)
  Sender: FDA-Public Use
  Company Number: US-REGENERON PHARMACEUTICALS, INC.-2024-079498

PATIENT
  Age: 73 Year
  Sex: Male

DRUGS (1)
  1. EYLEA HD [Suspect]
     Active Substance: AFLIBERCEPT
     Indication: Diabetic retinal oedema
     Dosage: UNK, INTO RIGHT EYE (FORMULATION: HD VIAL)
     Route: 031
     Dates: start: 20240521

REACTIONS (1)
  - Vertigo positional [Recovering/Resolving]

NARRATIVE: CASE EVENT DATE: 20240521
